FAERS Safety Report 5961225-7 (Version None)
Quarter: 2008Q4

REPORT INFORMATION
  Report Type: 
  Country: None (occurrence: None)
  Receive Date: 20081119
  Receipt Date: 20081106
  Transmission Date: 20090506
  Serious: Yes (Hospitalization)
  Sender: FDA-Public Use
  Company Number: DSA_32633_2008

PATIENT
  Age: 66 Year
  Sex: Male

DRUGS (1)
  1. DICLOFENAC SODIUM [Suspect]
     Indication: BACK PAIN
     Dosage: (DF); FEW WEEKS

REACTIONS (4)
  - BACTERAEMIA [None]
  - ECTHYMA [None]
  - NEUTROPENIA [None]
  - PSEUDOMONAS INFECTION [None]
